FAERS Safety Report 24710407 (Version 2)
Quarter: 2024Q4

REPORT INFORMATION
  Report Type: Spontaneous
  Country: BR (occurrence: BR)
  Receive Date: 20241209
  Receipt Date: 20241218
  Transmission Date: 20250114
  Serious: Yes (Hospitalization)
  Sender: DR REDDYS
  Company Number: BR-Dr. Reddys Brasil-SPO/BRA/24/0018130

PATIENT
  Age: 26 Year
  Weight: 72 kg

DRUGS (1)
  1. CARMUSTINE [Suspect]
     Active Substance: CARMUSTINE
     Indication: Product used for unknown indication
     Dosage: FREEZE-DRIED POWDER, 549 MILLIGRAM PER DECILITRE (MG/DL)
     Route: 042
     Dates: start: 20241126

REACTIONS (5)
  - Flushing [Recovered/Resolved]
  - Conjunctival hyperaemia [Recovered/Resolved]
  - Malaise [Recovered/Resolved]
  - Suffocation feeling [Recovered/Resolved]
  - Tachycardia [Recovered/Resolved]

NARRATIVE: CASE EVENT DATE: 20241126
